FAERS Safety Report 22656044 (Version 1)
Quarter: 2023Q2

REPORT INFORMATION
  Report Type: Spontaneous
  Country: US (occurrence: None)
  Receive Date: 20230629
  Receipt Date: 20230629
  Transmission Date: 20230722
  Serious: No
  Sender: FDA-Public Use
  Company Number: None

PATIENT

DRUGS (2)
  1. BUSPAR [Suspect]
     Active Substance: BUSPIRONE HYDROCHLORIDE
  2. LORATADINE [Suspect]
     Active Substance: LORATADINE

REACTIONS (2)
  - Product commingling [None]
  - Product dispensing error [None]

NARRATIVE: CASE EVENT DATE: 20230515
